FAERS Safety Report 18468933 (Version 1)
Quarter: 2020Q4

REPORT INFORMATION
  Report Type: Spontaneous
  Country: US (occurrence: US)
  Receive Date: 20201105
  Receipt Date: 20201105
  Transmission Date: 20210114
  Serious: No
  Sender: FDA-Public Use
  Company Number: None

PATIENT
  Age: 52 Year
  Sex: Female
  Weight: 63 kg

DRUGS (21)
  1. DEXTROAMPHETAMINE 5MG [Concomitant]
  2. CARVEDILOL 6.25MG [Concomitant]
     Active Substance: CARVEDILOL
  3. PSYLLIUM FIBER 0.52GM [Concomitant]
  4. SENNOSIDES-DOCUSATE 8.6-50MG [Concomitant]
  5. VENLAFAXINE ER 150MG [Concomitant]
     Active Substance: VENLAFAXINE HYDROCHLORIDE
  6. TYLENOL [Concomitant]
     Active Substance: ACETAMINOPHEN
  7. CALCIUM CARBONATE/VITAMIN D 600-400MG [Concomitant]
  8. ANASTRAZOLE 1MG [Concomitant]
     Active Substance: ANASTROZOLE
  9. LUPRON [Concomitant]
     Active Substance: LEUPROLIDE ACETATE
  10. MELOXICAM 15MG [Concomitant]
     Active Substance: MELOXICAM
  11. IMIPRAMINE 50MG [Concomitant]
  12. ONDANSETRON 4MG [Concomitant]
     Active Substance: ONDANSETRON
  13. PYRIDOXINE 100MG [Concomitant]
  14. GABAPENTIN 300MG [Concomitant]
     Active Substance: GABAPENTIN
  15. ALPRAZOLAM 0.5MG [Concomitant]
     Active Substance: ALPRAZOLAM
  16. BIOTIN 10000MCG [Concomitant]
  17. XGEVA [Concomitant]
     Active Substance: DENOSUMAB
  18. FEXOFENADINE 180MG [Concomitant]
     Active Substance: FEXOFENADINE HYDROCHLORIDE
  19. HERCEPTIN 440MG [Concomitant]
  20. TUKYSA [Concomitant]
     Active Substance: TUCATINIB
  21. CAPECITABINE. [Suspect]
     Active Substance: CAPECITABINE
     Indication: BREAST CANCER FEMALE
     Dosage: ?          OTHER FREQUENCY:BID X14 DAYS, 7OFF;?
     Route: 048
     Dates: start: 20200815

REACTIONS (1)
  - Palmar-plantar erythrodysaesthesia syndrome [None]

NARRATIVE: CASE EVENT DATE: 20201029
